FAERS Safety Report 10009491 (Version 2)
Quarter: 2014Q1

REPORT INFORMATION
  Report Type: Spontaneous
  Country: US (occurrence: US)
  Receive Date: 20140312
  Receipt Date: 20140312
  Transmission Date: 20141002
  Serious: No
  Sender: FDA-Public Use
  Company Number: US-INCYTE CORPORATION-2012IN001323

PATIENT
  Sex: Female
  Weight: 43.54 kg

DRUGS (4)
  1. JAKAFI [Suspect]
     Indication: MYELOFIBROSIS
     Dosage: 20 MG, BID
     Route: 048
     Dates: start: 20120614
  2. TOPROL XL [Concomitant]
     Dosage: 100 MG, QD
  3. DIOVAN [Concomitant]
     Dosage: 80 MG, QD
  4. MUSCLE RELAXANTS [Concomitant]
     Dosage: AT BEDTIME

REACTIONS (4)
  - Pain in extremity [Not Recovered/Not Resolved]
  - Muscle spasms [Not Recovered/Not Resolved]
  - Abdominal pain [Not Recovered/Not Resolved]
  - Diarrhoea [Not Recovered/Not Resolved]
